FAERS Safety Report 9526325 (Version 1)
Quarter: 2013Q3

REPORT INFORMATION
  Report Type: Spontaneous
  Country: NZ (occurrence: NZ)
  Receive Date: 20130916
  Receipt Date: 20130916
  Transmission Date: 20140515
  Serious: Yes (Hospitalization, Other)
  Sender: FDA-Public Use
  Company Number: NZ-BRISTOL-MYERS SQUIBB COMPANY-19372580

PATIENT
  Age: 15 Year
  Sex: Female

DRUGS (4)
  1. ARIPIPRAZOLE [Suspect]
     Route: 048
     Dates: start: 200810
  2. METFORMIN HCL [Suspect]
     Dates: start: 200810
  3. RISPERIDONE [Suspect]
     Dates: start: 2008
  4. OLANZAPINE [Suspect]
     Dates: start: 2008

REACTIONS (2)
  - Angioedema [Not Recovered/Not Resolved]
  - Weight increased [Not Recovered/Not Resolved]
